APPROVED DRUG PRODUCT: MORPHINE SULFATE
Active Ingredient: MORPHINE SULFATE
Strength: 80MG
Dosage Form/Route: CAPSULE, EXTENDED RELEASE;ORAL
Application: A203158 | Product #005
Applicant: ANDA REPOSITORY LLC
Approved: Aug 4, 2021 | RLD: No | RS: No | Type: DISCN